FAERS Safety Report 5975530-1 (Version None)
Quarter: 2008Q4

REPORT INFORMATION
  Report Type: 
  Country: None (occurrence: None)
  Receive Date: 20081202
  Receipt Date: 20080724
  Transmission Date: 20090506
  Serious: No
  Sender: FDA-Public Use
  Company Number: A0739210A

PATIENT
  Age: 62 Year
  Sex: Female

DRUGS (2)
  1. AUGMENTIN '125' [Suspect]
     Indication: URINARY TRACT INFECTION
     Dosage: 1TAB TWICE PER DAY
     Route: 048
     Dates: start: 20080715, end: 20080722
  2. NO CONCURRENT MEDICATION [Concomitant]

REACTIONS (3)
  - ASTHENIA [None]
  - CHILLS [None]
  - PYREXIA [None]
